FAERS Safety Report 22713748 (Version 2)
Quarter: 2023Q4

REPORT INFORMATION
  Report Type: Spontaneous
  Country: FR (occurrence: FR)
  Receive Date: 20230717
  Receipt Date: 20231124
  Transmission Date: 20240110
  Serious: Yes (Death, Life-Threatening, Hospitalization, Other)
  Sender: FDA-Public Use
  Company Number: FR-009507513-1809FRA002439

PATIENT
  Age: 66 Year
  Sex: Male
  Weight: 79 kg

DRUGS (20)
  1. CYCLOSPORINE [Suspect]
     Active Substance: CYCLOSPORINE
     Indication: Prophylaxis against graft versus host disease
     Dosage: 1059 MG OR 3650 MG DAILY
     Route: 042
     Dates: start: 20180815, end: 20180825
  2. CYCLOSPORINE [Suspect]
     Active Substance: CYCLOSPORINE
     Indication: Transplant
     Dosage: UNK
     Route: 042
     Dates: start: 20180826, end: 20180908
  3. CYCLOSPORINE [Suspect]
     Active Substance: CYCLOSPORINE
     Indication: Antiviral prophylaxis
  4. CYTARABINE [Suspect]
     Active Substance: CYTARABINE
     Indication: Acute myeloid leukaemia
     Dosage: 1 WEEK MONTHLY
     Route: 042
     Dates: start: 20170128, end: 20170501
  5. CYTARABINE [Suspect]
     Active Substance: CYTARABINE
     Indication: Prophylaxis against graft versus host disease
     Dosage: UNK
     Route: 042
     Dates: start: 20180506, end: 20180728
  6. CYTARABINE [Suspect]
     Active Substance: CYTARABINE
     Indication: Transplant
  7. CYCLOPHOSPHAMIDE [Suspect]
     Active Substance: CYCLOPHOSPHAMIDE
     Indication: Prophylaxis against graft versus host disease
     Dosage: 3650 MG, UNK
     Route: 042
     Dates: start: 20180824, end: 20180825
  8. LETERMOVIR [Suspect]
     Active Substance: LETERMOVIR
     Indication: Antiviral prophylaxis
     Dosage: 2 DOSAGE FORM, QD (240 MG (2 TABLETS), QD)
     Route: 048
     Dates: start: 20180828, end: 20180908
  9. LETERMOVIR [Suspect]
     Active Substance: LETERMOVIR
     Indication: Acute myeloid leukaemia
  10. CELLCEPT [Suspect]
     Active Substance: MYCOPHENOLATE MOFETIL
     Indication: Prophylaxis against graft versus host disease
     Dosage: UNK
     Route: 042
     Dates: start: 20180826, end: 20180908
  11. CELLCEPT [Suspect]
     Active Substance: MYCOPHENOLATE MOFETIL
     Indication: Transplant
  12. FLUDARABINE PHOSPHATE [Suspect]
     Active Substance: FLUDARABINE PHOSPHATE
     Indication: Acute myeloid leukaemia
     Dosage: 55 MG, QD
     Route: 042
     Dates: start: 20180815, end: 20180819
  13. CYCLOPHOSPHAMIDE [Suspect]
     Active Substance: CYCLOPHOSPHAMIDE
     Indication: Prophylaxis against graft versus host disease
     Dosage: 1059 MG OR 3650 MG DAILY
     Route: 042
     Dates: start: 20180815, end: 20180825
  14. CYCLOPHOSPHAMIDE [Suspect]
     Active Substance: CYCLOPHOSPHAMIDE
     Indication: Transplant
     Dosage: UNK
     Route: 065
  15. IDARUBICIN [Suspect]
     Active Substance: IDARUBICIN
     Indication: Acute myeloid leukaemia
     Dosage: 22 MG, QD
     Route: 042
     Dates: start: 20180505, end: 20180707
  16. MESNA [Concomitant]
     Active Substance: MESNA
     Indication: Product used for unknown indication
     Dosage: UNK 100 MG/ML
     Route: 065
  17. MESNA [Concomitant]
     Active Substance: MESNA
     Dosage: UNK; 100 MG/ML
     Route: 065
  18. MESNA [Concomitant]
     Active Substance: MESNA
     Dosage: UNK; 100 MG/ML
     Route: 065
  19. MESNA [Concomitant]
     Active Substance: MESNA
     Dosage: UNK; 100 MG/ML
     Route: 065
  20. CYCLOSPORINE [Concomitant]
     Active Substance: CYCLOSPORINE
     Indication: Prophylaxis against graft versus host disease
     Dosage: UNK
     Route: 042
     Dates: start: 20180826, end: 20180830

REACTIONS (5)
  - Septic shock [Fatal]
  - Acute kidney injury [Fatal]
  - Cardiac failure acute [Fatal]
  - Atrial fibrillation [Fatal]
  - Product administration error [Fatal]

NARRATIVE: CASE EVENT DATE: 20180830
